FAERS Safety Report 18545016 (Version 2)
Quarter: 2021Q3

REPORT INFORMATION
  Report Type: Report from Study
  Country: DE (occurrence: DE)
  Receive Date: 20201125
  Receipt Date: 20210720
  Transmission Date: 20211014
  Serious: Yes (Hospitalization, Other)
  Sender: FDA-Public Use
  Company Number: DE-SHIRE-DE201943391

PATIENT
  Age: 9 Year
  Sex: Female
  Weight: 16 kg

DRUGS (29)
  1. TEDUGLUTIDE [Suspect]
     Active Substance: TEDUGLUTIDE
     Indication: SHORT-BOWEL SYNDROME
     Dosage: 0.8 MILLIGRAM (0.05 MG/KG TED DAILY DOSE, 7 TED DOSAGE PER WEEK)
     Route: 065
     Dates: start: 20171001, end: 20200825
  2. TEDUGLUTIDE [Suspect]
     Active Substance: TEDUGLUTIDE
     Dosage: 0.900 MILLIGRAM (0.05 MG/KG), 1/WEEK
     Route: 065
     Dates: start: 20200826
  3. TEDUGLUTIDE [Suspect]
     Active Substance: TEDUGLUTIDE
     Dosage: 0.900 MILLIGRAM (0.05 MG/KG), 1/WEEK
     Route: 065
     Dates: start: 20200826
  4. AMPHO?MORONAL [Concomitant]
     Active Substance: AMPHOTERICIN B
     Indication: ANTIFUNGAL TREATMENT
  5. LEVOCARNITINE. [Concomitant]
     Active Substance: LEVOCARNITINE
     Indication: CARNITINE DEFICIENCY
  6. HEPARIN [Concomitant]
     Active Substance: HEPARIN SODIUM
     Indication: THROMBOSIS
  7. VITADRAL [Concomitant]
     Indication: VITAMIN A DEFICIENCY
     Dosage: 15 GTT DROPS, QD
     Route: 047
     Dates: start: 20200728
  8. HEPARIN [Concomitant]
     Active Substance: HEPARIN SODIUM
     Indication: WOUND TREATMENT
  9. BLEMAREN [Concomitant]
     Indication: RENAL FAILURE
     Dosage: 1 DOSAGE FORM, BID
     Route: 048
     Dates: start: 20210304
  10. TEDUGLUTIDE [Suspect]
     Active Substance: TEDUGLUTIDE
     Indication: SHORT-BOWEL SYNDROME
     Dosage: 0.8 MILLIGRAM (0.05 MG/KG TED DAILY DOSE, 7 TED DOSAGE PER WEEK)
     Route: 065
     Dates: start: 20171001, end: 20200825
  11. PRONTOSAN [POLIHEXANIDE] [Concomitant]
     Active Substance: POLIHEXANIDE
     Indication: COAGULATION TIME SHORTENED
  12. CREON [Concomitant]
     Active Substance: PANCRELIPASE AMYLASE\PANCRELIPASE LIPASE\PANCRELIPASE PROTEASE
     Indication: PANCREATIC FAILURE
     Dosage: 1 TSP, IF BIG MEAL PORTION
     Route: 048
     Dates: start: 20200728, end: 20201002
  13. CREON [Concomitant]
     Active Substance: PANCRELIPASE AMYLASE\PANCRELIPASE LIPASE\PANCRELIPASE PROTEASE
     Dosage: 2 TSP, ML WITH EVERY MEAL
     Route: 048
     Dates: start: 20201003
  14. GRANOCYTE [Concomitant]
     Active Substance: LENOGRASTIM
     Indication: NEUTROPENIA
     Dosage: 1 INTERNATIONAL UNIT, ONCE EVERY 3 DAYS
     Route: 042
     Dates: start: 20210304
  15. TEDUGLUTIDE [Suspect]
     Active Substance: TEDUGLUTIDE
     Dosage: 0.900 MILLIGRAM (0.05 MG/KG), 1/WEEK
     Route: 065
     Dates: start: 20200826
  16. NUROFEN EXPRESS [IBUPROFEN] [Concomitant]
     Active Substance: IBUPROFEN
     Indication: PYREXIA
  17. NEFROCARNIT [Concomitant]
     Indication: PRODUCT USED FOR UNKNOWN INDICATION
  18. FLUCLOXACILINA [FLUCLOXACILLIN] [Concomitant]
     Indication: SEPSIS
  19. TEDUGLUTIDE [Suspect]
     Active Substance: TEDUGLUTIDE
     Indication: SHORT-BOWEL SYNDROME
     Dosage: 0.8 MILLIGRAM (0.05 MG/KG TED DAILY DOSE, 7 TED DOSAGE PER WEEK)
     Route: 065
     Dates: start: 20171001, end: 20200825
  20. TEDUGLUTIDE [Suspect]
     Active Substance: TEDUGLUTIDE
     Dosage: 0.900 MILLIGRAM (0.05 MG/KG), 1/WEEK
     Route: 065
     Dates: start: 20200826
  21. FERRLECIT [COPPER SULFATE;FERRIC SODIUM CITRATE;NICOTINAMIDE;THIAMINE [Concomitant]
     Indication: IRON DEFICIENCY ANAEMIA
     Dosage: 10 MG/25 ML, 1/WEEK
     Route: 042
     Dates: start: 20200825
  22. OCTENISAN [ALLANTOIN;OCTENIDINE HYDROCHLORIDE] [Concomitant]
     Indication: WOUND TREATMENT
  23. LASIX [Concomitant]
     Active Substance: FUROSEMIDE
     Indication: DEHYDRATION
     Dosage: 15.00 MILLIGRAM, TID
     Route: 048
     Dates: start: 20210304
  24. ZINKOROT [Concomitant]
     Active Substance: ZINC OROTATE
     Indication: SUPPLEMENTATION THERAPY
  25. ERYTHROPOETIN [EPOETIN ALFA] [Concomitant]
     Indication: PRODUCT USED FOR UNKNOWN INDICATION
  26. OMNITROPE [Concomitant]
     Active Substance: SOMATROPIN
     Indication: PRODUCT USED FOR UNKNOWN INDICATION
  27. TEDUGLUTIDE [Suspect]
     Active Substance: TEDUGLUTIDE
     Indication: SHORT-BOWEL SYNDROME
     Dosage: 0.8 MILLIGRAM (0.05 MG/KG TED DAILY DOSE, 7 TED DOSAGE PER WEEK)
     Route: 065
     Dates: start: 20171001, end: 20200825
  28. FERRLECIT [COPPER SULFATE;FERRIC SODIUM CITRATE;NICOTINAMIDE;THIAMINE [Concomitant]
     Dosage: 25MG/50ML,WEEKLY
     Route: 042
     Dates: start: 20210304
  29. DECOSTRIOL [Concomitant]
     Active Substance: CALCITRIOL
     Indication: VITAMIN D DEFICIENCY

REACTIONS (11)
  - Sepsis [Recovered/Resolved]
  - Lymphopenia [Recovered/Resolved]
  - Pharyngitis [Recovered/Resolved]
  - Oral herpes [Recovered/Resolved]
  - Generalised oedema [Recovered/Resolved]
  - Device related sepsis [Recovered/Resolved]
  - Post procedural fistula [Recovered/Resolved]
  - Infection [Recovered/Resolved]
  - Leukopenia [Recovered/Resolved]
  - Viral infection [Recovered/Resolved]
  - Vascular device infection [Recovered/Resolved]

NARRATIVE: CASE EVENT DATE: 20191122
